FAERS Safety Report 5163838-1 (Version None)
Quarter: 2006Q4

REPORT INFORMATION
  Report Type: 
  Country: None (occurrence: None)
  Receive Date: 20061124
  Receipt Date: 20061110
  Transmission Date: 20070319
  Serious: Yes (Hospitalization, Other)
  Sender: FDA-Public Use
  Company Number: 2006140495

PATIENT
  Age: 50 Year
  Sex: Female

DRUGS (14)
  1. DELTA-CORTEF [Suspect]
  2. ENBREL [Concomitant]
  3. BUCILLAMINE (BUCILLAMINE) [Concomitant]
  4. ZALTOPROFEN (ZALTOPROFEN) [Concomitant]
  5. CODEINE PHOSPHATE (CODEINE PHOSPHATE) [Concomitant]
  6. WILD CHERRY BARK (WILD CHERRY BARK) [Concomitant]
  7. DEXTROMETHORPHAN HYDROBROMIDE [Concomitant]
  8. METHYLPREDNISOLONE ACETATE [Concomitant]
  9. DICLOFENAC SODIUM [Concomitant]
  10. CARBOCISTEINE (CARBOCISTEINE) [Concomitant]
  11. METHANIAZIDE (METHANIAZIDE) [Concomitant]
  12. SULFASALAZINE [Concomitant]
  13. SODIUM GUALENATE (SODIUM GUALENATE) [Concomitant]
  14. LEVOGLUTAMIDE (LEVOGLUTAMIDE) [Concomitant]

REACTIONS (6)
  - ABSCESS [None]
  - CONDITION AGGRAVATED [None]
  - GASTRIC ULCER [None]
  - INTERSTITIAL LUNG DISEASE [None]
  - PNEUMONIA INFLUENZAL [None]
  - RESPIRATORY FAILURE [None]
